FAERS Safety Report 8279066-7 (Version None)
Quarter: 2012Q2

REPORT INFORMATION
  Report Type: 
  Country: None (occurrence: None)
  Receive Date: 20120412
  Receipt Date: 20120411
  Transmission Date: 20120825
  Serious: Yes (Death, Hospitalization)
  Sender: FDA-Public Use
  Company Number: PHHY2012US000772

PATIENT
  Age: 38 Year
  Sex: Female

DRUGS (3)
  1. RADIATION [Suspect]
     Dosage: 45-55 GY
  2. CISPLATIN [Suspect]
  3. FLUOROURACIL [Suspect]

REACTIONS (11)
  - FISTULA [None]
  - GRAND MAL CONVULSION [None]
  - BRAIN OEDEMA [None]
  - GASTROINTESTINAL TOXICITY [None]
  - CARDIAC DISORDER [None]
  - HAEMATEMESIS [None]
  - AIR EMBOLISM [None]
  - PYREXIA [None]
  - INTRACRANIAL PRESSURE INCREASED [None]
  - FAT EMBOLISM [None]
  - CONFUSIONAL STATE [None]
